FAERS Safety Report 5630218-1 (Version None)
Quarter: 2008Q1

REPORT INFORMATION
  Report Type: 
  Country: None (occurrence: None)
  Receive Date: 20080219
  Receipt Date: 20080208
  Transmission Date: 20080703
  Serious: Yes (Hospitalization)
  Sender: FDA-Public Use
  Company Number: DE-ELI_LILLY_AND_COMPANY-DE200802002013

PATIENT
  Age: 37 Year
  Sex: Male

DRUGS (2)
  1. OLANZAPINE [Suspect]
     Dosage: 20 MG, DAILY (1/D)
     Route: 048
     Dates: start: 20071228, end: 20080101
  2. XIMOVAN [Concomitant]
     Dosage: 3.75 MG, 2/D
     Route: 048
     Dates: start: 20080107

REACTIONS (1)
  - HYPOTONIC URINARY BLADDER [None]
